FAERS Safety Report 11805981 (Version 1)
Quarter: 2015Q4

REPORT INFORMATION
  Report Type: Spontaneous
  Country: US (occurrence: None)
  Receive Date: 20151204
  Receipt Date: 20151204
  Transmission Date: 20160305
  Serious: Yes (Hospitalization, Disabling)
  Sender: FDA-Public Use
  Company Number: None

PATIENT
  Age: 52 Year
  Sex: Female
  Weight: 69.4 kg

DRUGS (4)
  1. GADOVIST 6ML [Suspect]
     Active Substance: GADOBUTROL
     Indication: NUCLEAR MAGNETIC RESONANCE IMAGING
     Dates: start: 20150123, end: 20150123
  2. VITAMIN D3 [Concomitant]
     Active Substance: CHOLECALCIFEROL
  3. MULTIHANCE [Suspect]
     Active Substance: GADOBENATE DIMEGLUMINE
     Indication: NUCLEAR MAGNETIC RESONANCE IMAGING
     Dates: start: 20150615, end: 20150615
  4. WOMEN^S MULTIVITAMIN [Concomitant]

REACTIONS (4)
  - Muscle tightness [None]
  - Asthenia [None]
  - Fatigue [None]
  - Bone pain [None]

NARRATIVE: CASE EVENT DATE: 20150123
